FAERS Safety Report 4742051-3 (Version None)
Quarter: 2005Q3

REPORT INFORMATION
  Report Type: 
  Country: None (occurrence: None)
  Receive Date: 20050804
  Receipt Date: 20050509
  Transmission Date: 20060218
  Serious: No
  Sender: FDA-Public Use
  Company Number: FACT0500407

PATIENT
  Age: 18 Year
  Sex: Male
  Weight: 53.5 kg

DRUGS (4)
  1. FACTIVE [Suspect]
     Indication: RESPIRATORY TRACT INFECTION BACTERIAL
     Dosage: ORAL
     Route: 048
     Dates: start: 20050425, end: 20050427
  2. ROCEPHIN [Concomitant]
  3. FLONASE [Concomitant]
  4. ZYRTEC [Concomitant]

REACTIONS (1)
  - RASH MACULAR [None]
